FAERS Safety Report 16312659 (Version 1)
Quarter: 2019Q2

REPORT INFORMATION
  Report Type: Spontaneous
  Country: GB (occurrence: GB)
  Receive Date: 20190515
  Receipt Date: 20190515
  Transmission Date: 20190711
  Serious: Yes (Hospitalization, Other)
  Sender: FDA-Public Use
  Company Number: GB-TEVA-2019-GB-1048179

PATIENT
  Age: 80 Year
  Sex: Female
  Weight: 60 kg

DRUGS (6)
  1. MONOPOST [Concomitant]
     Active Substance: LATANOPROST
     Dosage: 1 GTT DAILY; 1 DROP IN THE LEFT EYE ONCE DAILY. 0.2ML UNIT DOSE
     Route: 047
     Dates: start: 20190110
  2. CLOTRIMAZOLE. [Concomitant]
     Active Substance: CLOTRIMAZOLE
     Indication: CANDIDA INFECTION
     Dosage: APPLY TWO TO THREE TIMES DAILY
     Dates: start: 20190329
  3. TRIMETHOPRIM. [Suspect]
     Active Substance: TRIMETHOPRIM
     Dosage: 400 MILLIGRAM DAILY;
     Dates: start: 20190327
  4. DORZOLAMIDE [Concomitant]
     Active Substance: DORZOLAMIDE
     Dosage: 2 DOSAGE FORMS DAILY; APPLY TWICE A DAY TO LEFT EYE - 20MG/ML EYE DROPS 0.2ML
     Route: 047
     Dates: start: 20190110
  5. TRIMETHOPRIM. [Suspect]
     Active Substance: TRIMETHOPRIM
     Dosage: 50MG/5ML
     Dates: start: 20190402, end: 20190402
  6. FOLIC ACID. [Concomitant]
     Active Substance: FOLIC ACID
     Dosage: 5 MILLIGRAM DAILY;
     Dates: start: 20190225

REACTIONS (2)
  - Genital blister [Recovering/Resolving]
  - Rash vesicular [Recovering/Resolving]

NARRATIVE: CASE EVENT DATE: 20190402
